FAERS Safety Report 10669865 (Version 2)
Quarter: 2015Q1

REPORT INFORMATION
  Report Type: Spontaneous
  Country: US (occurrence: US)
  Receive Date: 20141222
  Receipt Date: 20150114
  Transmission Date: 20150720
  Serious: Yes (Other)
  Sender: FDA-Public Use
  Company Number: ALCN2014US007048

PATIENT
  Age: 63 Year
  Sex: Male
  Weight: 83.9 kg

DRUGS (4)
  1. PRED FORTE [Concomitant]
     Active Substance: PREDNISOLONE ACETATE
     Indication: CATARACT OPERATION
     Route: 047
  2. BETADINE [Suspect]
     Active Substance: POVIDONE-IODINE
     Indication: CATARACT OPERATION
     Dosage: UNK
     Route: 047
     Dates: start: 20141209, end: 20141209
  3. BSS [Suspect]
     Active Substance: CALCIUM CHLORIDE\MAGNESIUM CHLORIDE\POTASSIUM CHLORIDE\SODIUM ACETATE\SODIUM CHLORIDE\SODIUM CITRATE
     Indication: CATARACT OPERATION
     Dosage: UNK
     Route: 065
     Dates: start: 20141209, end: 20141209
  4. POLYTRIM [Concomitant]
     Active Substance: POLYMYXIN B SULFATE\TRIMETHOPRIM SULFATE
     Indication: CATARACT OPERATION
     Dosage: 1 GTT, QID
     Route: 047

REACTIONS (3)
  - Vitritis [Recovering/Resolving]
  - Endophthalmitis [Recovering/Resolving]
  - Corneal oedema [Recovering/Resolving]

NARRATIVE: CASE EVENT DATE: 20141211
